FAERS Safety Report 9880801 (Version 1)
Quarter: 2014Q1

REPORT INFORMATION
  Report Type: Spontaneous
  Country: GB (occurrence: None)
  Receive Date: 20140205
  Receipt Date: 20140205
  Transmission Date: 20141002
  Serious: Yes (Disabling, Other)
  Sender: FDA-Public Use
  Company Number: 2158571

PATIENT
  Age: 61 Year
  Sex: Female
  Weight: 88.9 kg

DRUGS (7)
  1. EPIRUBICIN HYDROCHLORIDE [Suspect]
     Indication: BREAST CANCER FEMALE
     Route: 051
     Dates: start: 20101210, end: 20110428
  2. DOCETAXEL [Suspect]
     Indication: BREAST CANCER FEMALE
     Route: 051
     Dates: start: 20101210, end: 20110428
  3. CYCLOPHOSPHAMIDE [Suspect]
     Indication: BREAST CANCER FEMALE
     Route: 051
     Dates: start: 20101210, end: 20110428
  4. TRASTUZUMAB [Suspect]
     Indication: BREAST CANCER FEMALE
     Route: 051
     Dates: start: 20101210, end: 20110428
  5. PREDNISOLONE [Suspect]
     Indication: BREAST CANCER FEMALE
     Route: 051
     Dates: start: 20101210, end: 20110428
  6. ANASTROZOLE [Concomitant]
  7. FLUTICASONE PROPIONATE W/SALMETEROL XINAFOATE [Concomitant]

REACTIONS (8)
  - Photopsia [None]
  - Blindness [None]
  - Hypoacusis [None]
  - Arthralgia [None]
  - Headache [None]
  - Toxicity to various agents [None]
  - Grip strength decreased [None]
  - Infusion site nerve damage [None]
